FAERS Safety Report 4964495-7 (Version None)
Quarter: 2006Q1

REPORT INFORMATION
  Report Type: 
  Country: None (occurrence: None)
  Receive Date: 20060331
  Receipt Date: 20060313
  Transmission Date: 20060701
  Serious: Yes (Hospitalization, Disabling, Other)
  Sender: FDA-Public Use
  Company Number: US_0504115276

PATIENT
  Age: 48 Year
  Sex: Male
  Weight: 109.8 kg

DRUGS (7)
  1. ZYPREXA [Suspect]
     Dosage: 10 MG, DAILY (1/D), ORAL; 20 MG, DAILY (1/D), ORAL
     Route: 048
     Dates: start: 19970101, end: 20021016
  2. ZYPREXA [Suspect]
     Dosage: 10 MG, DAILY (1/D), ORAL; 20 MG, DAILY (1/D), ORAL
     Route: 048
     Dates: start: 20021016, end: 20030707
  3. LITHIUM (LITHIUM) CAPSULE [Concomitant]
  4. SYNTHROID (LEVOTHYROXINE SODIUM) PILL (EXCEPT TABLETS) [Concomitant]
  5. ARIPIPRAZOLE (ARIPIPRAZOLE) [Concomitant]
  6. PROCARDIA [Concomitant]
  7. COGENTIN [Concomitant]

REACTIONS (23)
  - ACTIVITIES OF DAILY LIVING IMPAIRED [None]
  - AGGRESSION [None]
  - ANOXIC ENCEPHALOPATHY [None]
  - BLOOD CHOLESTEROL INCREASED [None]
  - BLOOD PRESSURE INCREASED [None]
  - DEEP VEIN THROMBOSIS [None]
  - DEMENTIA [None]
  - DIABETES MELLITUS NON-INSULIN-DEPENDENT [None]
  - DIABETIC COMA [None]
  - DIABETIC KETOACIDOSIS [None]
  - DYSARTHRIA [None]
  - ELECTROCARDIOGRAM ABNORMAL [None]
  - FALL [None]
  - GASTROOESOPHAGEAL REFLUX DISEASE [None]
  - GLUCOSE TOLERANCE IMPAIRED [None]
  - HYPOGLYCAEMIA [None]
  - HYPOKINESIA [None]
  - INCREASED APPETITE [None]
  - LETHARGY [None]
  - MYOCARDIAL INFARCTION [None]
  - TREATMENT NONCOMPLIANCE [None]
  - UNRESPONSIVE TO VERBAL STIMULI [None]
  - WEIGHT INCREASED [None]
